FAERS Safety Report 7764415-6 (Version None)
Quarter: 2011Q3

REPORT INFORMATION
  Report Type: 
  Country: None (occurrence: None)
  Receive Date: 20110921
  Receipt Date: 20110913
  Transmission Date: 20111222
  Serious: Yes (Other)
  Sender: FDA-Public Use
  Company Number: JP-PFIZER INC-2011216328

PATIENT
  Sex: Male

DRUGS (1)
  1. BENEFIX [Suspect]
     Indication: HAEMORRHAGE PROPHYLAXIS
     Dosage: 4000 IU, 1X/DAY
     Route: 042
     Dates: start: 20110520

REACTIONS (2)
  - URTICARIA [None]
  - VOMITING [None]
